FAERS Safety Report 9625664 (Version 3)
Quarter: 2014Q1

REPORT INFORMATION
  Report Type: Spontaneous
  Country: CA (occurrence: CA)
  Receive Date: 20131016
  Receipt Date: 20140328
  Transmission Date: 20141002
  Serious: Yes (Life-Threatening, Hospitalization, Disabling)
  Sender: FDA-Public Use
  Company Number: CA-JNJFOC-20121213682

PATIENT
  Age: 27 Year
  Sex: Female
  Weight: 47.63 kg

DRUGS (1)
  1. EVRA [Suspect]
     Indication: CONTRACEPTION
     Route: 062
     Dates: start: 20100526, end: 201102

REACTIONS (2)
  - Dyskinesia [Not Recovered/Not Resolved]
  - Embolic stroke [Not Recovered/Not Resolved]
